FAERS Safety Report 7313952-7 (Version None)
Quarter: 2011Q1

REPORT INFORMATION
  Report Type: 
  Country: None (occurrence: None)
  Receive Date: 20110225
  Receipt Date: 20110210
  Transmission Date: 20110831
  Serious: Yes (Hospitalization, Other)
  Sender: FDA-Public Use
  Company Number: PHHY2010US89855

PATIENT
  Sex: Female

DRUGS (3)
  1. EXTAVIA [Suspect]
     Indication: MULTIPLE SCLEROSIS
     Dosage: 0.062 MG, QOD
     Route: 058
     Dates: start: 20101228
  2. ADVIL [Concomitant]
  3. PROZAC [Concomitant]

REACTIONS (7)
  - BRONCHITIS [None]
  - HEADACHE [None]
  - PHARYNGITIS STREPTOCOCCAL [None]
  - PAIN [None]
  - SLUGGISHNESS [None]
  - PYREXIA [None]
  - INFLUENZA LIKE ILLNESS [None]
